FAERS Safety Report 10495509 (Version 3)
Quarter: 2014Q4

REPORT INFORMATION
  Report Type: Report from Study
  Country: BE (occurrence: BE)
  Receive Date: 20141003
  Receipt Date: 20141126
  Transmission Date: 20150528
  Serious: Yes (Death, Hospitalization)
  Sender: FDA-Public Use
  Company Number: BE-BAYER-2014-123978

PATIENT
  Age: 64 Year
  Sex: Male

DRUGS (9)
  1. MEDROL [Concomitant]
     Active Substance: METHYLPREDNISOLONE
     Dosage: 4 MG, OM
  2. LANTUS [Concomitant]
     Active Substance: INSULIN GLARGINE
     Dosage: 18 IU IN THE EVENING
  3. LOORTAN [Concomitant]
     Dosage: 50 MG, OM
  4. ALDACTONE [Concomitant]
     Active Substance: SPIRONOLACTONE
     Dosage: 50 MG, 4IW
  5. NEXAVAR [Suspect]
     Active Substance: SORAFENIB
     Indication: HEPATOCELLULAR CARCINOMA
     Dosage: DAILY DOSE 800 MG
     Dates: start: 20140728, end: 20140916
  6. PANTOPRAZOLE SODIUM [Concomitant]
     Active Substance: PANTOPRAZOLE SODIUM
     Dosage: 20 MG, OM
  7. HUMULINE REGULAR [Concomitant]
     Dosage: TID (9U IN THE MORNING, 11U AT NOON AND 11U IN THE EVENING)
  8. LASIX [Concomitant]
     Active Substance: FUROSEMIDE
     Dosage: 40 MG, TIW
  9. ASAFLOW [Concomitant]
     Active Substance: ASPIRIN
     Dosage: 80 MG, OM

REACTIONS (14)
  - Abdominal distension [None]
  - Abdominal pain upper [None]
  - Jaundice [None]
  - Disturbance in attention [None]
  - Decreased appetite [None]
  - Gastrointestinal pain [Recovered/Resolved]
  - Fatigue [None]
  - Peripheral swelling [None]
  - Jaundice [Fatal]
  - Diarrhoea [Recovering/Resolving]
  - Asthenia [None]
  - Musculoskeletal pain [None]
  - Blood bilirubin abnormal [None]
  - Neck pain [None]

NARRATIVE: CASE EVENT DATE: 20140811
